FAERS Safety Report 10256124 (Version 1)
Quarter: 2014Q2

REPORT INFORMATION
  Report Type: Spontaneous
  Country: RO (occurrence: RO)
  Receive Date: 20140624
  Receipt Date: 20140624
  Transmission Date: 20141212
  Serious: Yes (Other)
  Sender: FDA-Public Use
  Company Number: PHHY2014RO073244

PATIENT
  Age: 59 Year
  Sex: Female

DRUGS (2)
  1. RIBAVIRIN [Suspect]
     Indication: CHRONIC HEPATITIS C
  2. PEGASYS [Suspect]
     Indication: CHRONIC HEPATITIS C

REACTIONS (12)
  - Guillain-Barre syndrome [Recovered/Resolved]
  - Paraesthesia [Recovered/Resolved]
  - Asthenia [Recovered/Resolved]
  - Hypoaesthesia [Recovered/Resolved]
  - Chest pain [Recovered/Resolved]
  - Demyelinating polyneuropathy [Recovered/Resolved]
  - Paresis [Recovered/Resolved]
  - VIIth nerve paralysis [Recovered/Resolved]
  - Acute psychosis [Recovered/Resolved]
  - Agitation [Recovered/Resolved]
  - Abnormal dreams [Recovered/Resolved]
  - Hallucination, visual [Recovered/Resolved]
